FAERS Safety Report 10029692 (Version 1)
Quarter: 2014Q1

REPORT INFORMATION
  Report Type: Spontaneous
  Country: US (occurrence: None)
  Receive Date: 20140321
  Receipt Date: 20140321
  Transmission Date: 20141002
  Serious: Yes (Other)
  Sender: FDA-Public Use
  Company Number: None

PATIENT
  Age: 31 Year
  Sex: Female
  Weight: 68.04 kg

DRUGS (1)
  1. AMPHETAMINE SALTS [Suspect]
     Indication: ATTENTION DEFICIT/HYPERACTIVITY DISORDER
     Dosage: 1 THREE TIMES DAILY TAKEN BY MOUTH
     Route: 048
     Dates: start: 20140312, end: 20140319

REACTIONS (9)
  - Product quality issue [None]
  - Drug effect decreased [None]
  - Migraine [None]
  - Dizziness [None]
  - Confusional state [None]
  - Feeling abnormal [None]
  - Dizziness [None]
  - Balance disorder [None]
  - Impaired driving ability [None]
